FAERS Safety Report 7305031-X (Version None)
Quarter: 2011Q1

REPORT INFORMATION
  Report Type: 
  Country: None (occurrence: None)
  Receive Date: 20110222
  Receipt Date: 20110213
  Transmission Date: 20110831
  Serious: Yes (Other)
  Sender: FDA-Public Use
  Company Number: DE-NOVOPROD-323540

PATIENT
  Sex: Female
  Weight: 152 kg

DRUGS (3)
  1. VICTOZA [Suspect]
     Dosage: UNK
     Route: 058
     Dates: start: 20091001, end: 20110101
  2. METFORMIN [Concomitant]
     Dosage: UNK
     Route: 048
  3. FURORESE                           /00032601/ [Concomitant]

REACTIONS (2)
  - HYPOGLYCAEMIA [None]
  - TACHYCARDIA [None]
